FAERS Safety Report 16803061 (Version 1)
Quarter: 2019Q3

REPORT INFORMATION
  Report Type: Report from Study
  Country: US (occurrence: US)
  Receive Date: 20190913
  Receipt Date: 20190913
  Transmission Date: 20191005
  Serious: Yes (Other)
  Sender: FDA-Public Use
  Company Number: US-BEH-2019106745

PATIENT
  Age: 70 Year
  Sex: Female
  Weight: 81.63 kg

DRUGS (4)
  1. HIZENTRA [Suspect]
     Active Substance: HUMAN IMMUNOGLOBULIN G
     Indication: IMMUNODEFICIENCY COMMON VARIABLE
     Dosage: 5 GRAM, QW
     Route: 058
     Dates: start: 20190826
  2. HIZENTRA [Suspect]
     Active Substance: HUMAN IMMUNOGLOBULIN G
     Dosage: UNK
     Route: 058
  3. HIZENTRA [Suspect]
     Active Substance: HUMAN IMMUNOGLOBULIN G
     Dosage: 5 GRAM, TOT
     Route: 058
     Dates: start: 20190902, end: 20190902
  4. HIZENTRA [Suspect]
     Active Substance: HUMAN IMMUNOGLOBULIN G
     Dosage: UNK
     Route: 058

REACTIONS (5)
  - Arthralgia [Recovering/Resolving]
  - Lung disorder [Recovering/Resolving]
  - Hypoaesthesia oral [Recovering/Resolving]
  - Tongue discomfort [Recovering/Resolving]
  - Paraesthesia oral [Recovering/Resolving]

NARRATIVE: CASE EVENT DATE: 20190902
